FAERS Safety Report 9629609 (Version 1)
Quarter: 2013Q4

REPORT INFORMATION
  Report Type: Spontaneous
  Country: GB (occurrence: GB)
  Receive Date: 20131017
  Receipt Date: 20131017
  Transmission Date: 20140711
  Serious: Yes (Other)
  Sender: FDA-Public Use
  Company Number: GB-ACTAVIS-2013-18888

PATIENT
  Age: 73 Year
  Sex: Male

DRUGS (1)
  1. CO-CODAMOL [Suspect]
     Indication: PERIARTHRITIS
     Dosage: 500 MG, AT NIGHT
     Route: 048

REACTIONS (2)
  - Vision blurred [Not Recovered/Not Resolved]
  - Visual acuity reduced [Not Recovered/Not Resolved]
